FAERS Safety Report 24813510 (Version 1)
Quarter: 2025Q1

REPORT INFORMATION
  Report Type: Spontaneous
  Country: GB (occurrence: GB)
  Receive Date: 20250107
  Receipt Date: 20250107
  Transmission Date: 20250409
  Serious: Yes (Life-Threatening, Hospitalization, Other)
  Sender: AUROBINDO
  Company Number: GB-MHRA-EMIS-10477-2de6696e-0f51-4d24-ac37-21491e8b8139

PATIENT
  Age: 55 Year
  Sex: Female
  Weight: 48 kg

DRUGS (10)
  1. ALENDRONIC ACID [Suspect]
     Active Substance: ALENDRONIC ACID
     Indication: Product used for unknown indication
     Dosage: 1 DOSAGE FORM, EVERY WEEK (ONE TO BE TAKEN ON THE SAME DAY EACH WEEK)
     Route: 065
     Dates: start: 20170104, end: 20241106
  2. Aymes shake [Concomitant]
     Indication: Product used for unknown indication
     Route: 065
     Dates: start: 20241211
  3. COCODAMOL [Concomitant]
     Active Substance: ACETAMINOPHEN\CODEINE PHOSPHATE
     Indication: Product used for unknown indication
     Route: 065
     Dates: start: 20241028, end: 20241105
  4. CODEINE [Concomitant]
     Active Substance: CODEINE
     Indication: Product used for unknown indication
     Route: 065
     Dates: start: 20241108, end: 20241114
  5. IBUPROFEN [Concomitant]
     Active Substance: IBUPROFEN
     Indication: Product used for unknown indication
     Route: 065
     Dates: start: 20240924, end: 20241106
  6. IVABRADINE [Concomitant]
     Active Substance: IVABRADINE
     Indication: Product used for unknown indication
     Dosage: 2.5 MILLIGRAM, TWO TIMES A DAY (ONE TO BE TAKEN TWICE A DAY)
     Route: 065
     Dates: start: 20241114
  7. METRONIDAZOLE [Concomitant]
     Active Substance: METRONIDAZOLE
     Indication: Product used for unknown indication
     Dosage: 1 DOSAGE FORM, 3 TIMES A DAY (ONE TO BE TAKEN THREE TIMES A DAY)
     Route: 065
     Dates: start: 20241108, end: 20241207
  8. CHLORHEXIDINE HYDROCHLORIDE\NEOMYCIN SULFATE [Concomitant]
     Active Substance: CHLORHEXIDINE HYDROCHLORIDE\NEOMYCIN SULFATE
     Indication: Product used for unknown indication
     Dosage: 15 GRAM, FOUR TIMES/DAY (APPLY TO NOSTRILS FOUR TIMES A DAY FOR 10 DAYS)
     Route: 065
     Dates: start: 20241009, end: 20241127
  9. SENNA [Concomitant]
     Active Substance: SENNOSIDES
     Indication: Product used for unknown indication
     Dosage: 2 DOSAGE FORM, ONCE A DAY (TWO TO BE TAKEN AT NIGHT IN BLISTER)
     Route: 065
     Dates: start: 20241114
  10. SEA WATER [Concomitant]
     Active Substance: SEA WATER
     Indication: Product used for unknown indication
     Route: 065
     Dates: start: 20241009, end: 20241010

REACTIONS (3)
  - Osteonecrosis of jaw [Not Recovered/Not Resolved]
  - Abscess jaw [Unknown]
  - Discharge [Unknown]
